FAERS Safety Report 24883390 (Version 1)
Quarter: 2025Q1

REPORT INFORMATION
  Report Type: Spontaneous
  Country: NO (occurrence: NO)
  Receive Date: 20250124
  Receipt Date: 20250124
  Transmission Date: 20250409
  Serious: Yes (Hospitalization, Other)
  Sender: RANBAXY
  Company Number: NO-SUN PHARMACEUTICAL INDUSTRIES LTD-2025RR-489586

PATIENT
  Sex: Male

DRUGS (4)
  1. TILDRAKIZUMAB [Suspect]
     Active Substance: TILDRAKIZUMAB
     Indication: Psoriasis
     Route: 065
  2. HYRIMOZ [Suspect]
     Active Substance: ADALIMUMAB-ADAZ
     Indication: Psoriasis
     Route: 058
     Dates: start: 20210315, end: 202112
  3. HYRIMOZ [Suspect]
     Active Substance: ADALIMUMAB-ADAZ
     Route: 058
  4. HYRIMOZ [Suspect]
     Active Substance: ADALIMUMAB-ADAZ
     Route: 058

REACTIONS (15)
  - Vision blurred [Unknown]
  - Facial paralysis [Unknown]
  - Cerebrovascular accident [Unknown]
  - Uveitis [Unknown]
  - Dementia [Unknown]
  - Brain injury [Unknown]
  - Ocular hypertension [Unknown]
  - Sarcoidosis [Unknown]
  - Tinnitus [Unknown]
  - Amnesia [Unknown]
  - Disturbance in attention [Unknown]
  - Cognitive disorder [Unknown]
  - Drug ineffective [Unknown]
  - Product physical issue [Unknown]
  - Product substitution [Unknown]

NARRATIVE: CASE EVENT DATE: 20220401
